FAERS Safety Report 10278615 (Version 2)
Quarter: 2014Q3

REPORT INFORMATION
  Report Type: Spontaneous
  Country: ZA (occurrence: ZA)
  Receive Date: 20140704
  Receipt Date: 20140711
  Transmission Date: 20150326
  Serious: Yes (Other)
  Sender: FDA-Public Use
  Company Number: PHHY2014ZA081078

PATIENT
  Age: 14 Year
  Sex: Male

DRUGS (3)
  1. RITALIN LA [Suspect]
     Active Substance: METHYLPHENIDATE HYDROCHLORIDE
     Indication: ATTENTION DEFICIT/HYPERACTIVITY DISORDER
     Dosage: 20 MG, UNK
     Dates: start: 2010
  2. DAILY VITAMINS [Concomitant]
     Dosage: UNK UKN, UNK
  3. RITALIN LA [Suspect]
     Active Substance: METHYLPHENIDATE HYDROCHLORIDE
     Dosage: 2 DF, UNK
     Dates: end: 2014

REACTIONS (5)
  - Somnolence [Recovering/Resolving]
  - Delirium [Recovering/Resolving]
  - Overdose [Recovering/Resolving]
  - Disorientation [Recovering/Resolving]
  - Unresponsive to stimuli [Recovering/Resolving]
